FAERS Safety Report 13529037 (Version 1)
Quarter: 2017Q2

REPORT INFORMATION
  Report Type: Report from Study
  Country: US (occurrence: US)
  Receive Date: 20170509
  Receipt Date: 20170509
  Transmission Date: 20170830
  Serious: Yes (Death, Hospitalization)
  Sender: FDA-Public Use
  Company Number: US-PROMETHEUS LABORATORIES-2017PL000042

PATIENT
  Age: 58 Year
  Sex: Male

DRUGS (4)
  1. PROLEUKIN [Suspect]
     Active Substance: ALDESLEUKIN
     Dosage: 49400000 IU, EVERY 8 HOURS
     Route: 042
     Dates: start: 20100104, end: 20100107
  2. PROLEUKIN [Suspect]
     Active Substance: ALDESLEUKIN
     Indication: RENAL CELL CARCINOMA
     Dosage: 62940000 IU, EVERY 8 HOURS
     Route: 042
     Dates: start: 20091214, end: 20091217
  3. PROLEUKIN [Suspect]
     Active Substance: ALDESLEUKIN
     Dosage: 64440000 IU, EVERY 8 HOURS
     Route: 042
     Dates: start: 20100405, end: 20100408
  4. PROLEUKIN [Suspect]
     Active Substance: ALDESLEUKIN
     Dosage: 600 KIU, EVERY 8 HOURS
     Route: 042
     Dates: start: 20100426, end: 20100429

REACTIONS (7)
  - Hypotension [Recovered/Resolved]
  - Renal failure [Recovered/Resolved]
  - Autoimmune myocarditis [Recovered/Resolved]
  - Paraesthesia [Recovered/Resolved]
  - Hypotension [Recovered/Resolved]
  - Disease progression [Fatal]
  - Thrombocytopenia [Recovered/Resolved]

NARRATIVE: CASE EVENT DATE: 20100107
